FAERS Safety Report 6940706-3 (Version None)
Quarter: 2010Q3

REPORT INFORMATION
  Report Type: 
  Country: None (occurrence: None)
  Receive Date: 20100825
  Receipt Date: 20100819
  Transmission Date: 20110219
  Serious: Yes (Death)
  Sender: FDA-Public Use
  Company Number: GB-ROCHE-722007

PATIENT
  Sex: Male

DRUGS (4)
  1. CAPECITABINE [Suspect]
     Dosage: DOSE: 35000.LAST DOSE PRIOR TO SAE: 02 NOVEMBER 2009.
     Route: 048
     Dates: start: 20090911
  2. BEVACIZUMAB [Suspect]
     Dosage: LAST DOSE PRIOR TO SAE: 11 JUNE 2010
     Route: 042
     Dates: start: 20090911
  3. CISPLATIN [Suspect]
     Dosage: LAST DOSE PRIOR TO SAE: 02 NOVEMBER 2009
     Route: 042
     Dates: start: 20090911
  4. EPIRUBICIN [Suspect]
     Dosage: LAST DOSE PRIOR TO SAE: 02 NOVEMBER 2009.
     Route: 042
     Dates: start: 20090911

REACTIONS (1)
  - ABDOMINAL PAIN [None]
